FAERS Safety Report 8513079-2 (Version None)
Quarter: 2012Q3

REPORT INFORMATION
  Report Type: 
  Country: None (occurrence: None)
  Receive Date: 20120716
  Receipt Date: 20070615
  Transmission Date: 20120928
  Serious: Yes (Death, Other)
  Sender: FDA-Public Use
  Company Number: CO-PFIZER INC-2012169403

PATIENT
  Age: 70 Year
  Sex: Female

DRUGS (5)
  1. LOSARTAN [Concomitant]
     Dosage: 50 MG, 1X/DAY
     Route: 065
  2. CARBAMAZEPINE [Concomitant]
     Dosage: 200 MG, 1X/DAY
     Route: 065
  3. LIPITOR [Suspect]
     Dosage: 10 MG, 1X/DAY
     Route: 065
  4. HYDROCHLOROTHIAZIDE [Concomitant]
     Dosage: 25 MG, 1X/DAY
     Route: 065
  5. ACETYLSALICYLIC ACID [Concomitant]
     Dosage: 100 MG, 1X/DAY
     Route: 065

REACTIONS (5)
  - ANGIOPLASTY [None]
  - PAIN IN EXTREMITY [None]
  - DEATH [None]
  - OSTEOARTHRITIS [None]
  - ANAEMIA [None]
